FAERS Safety Report 6291772-2 (Version None)
Quarter: 2009Q3

REPORT INFORMATION
  Report Type: 
  Country: None (occurrence: None)
  Receive Date: 20090729
  Receipt Date: 20090721
  Transmission Date: 20100115
  Serious: Yes (Other)
  Sender: FDA-Public Use
  Company Number: CHPA2009US15737

PATIENT
  Age: 58 Year
  Sex: Female

DRUGS (6)
  1. CONTROL PLP (NCH) (NICOTINE) TRANS-THERAPEUTIC-SYSTEM [Suspect]
     Indication: SMOKING CESSATION THERAPY
     Dosage: 7 MG, QD, TRANSDERMAL
     Route: 062
     Dates: start: 20090701
  2. NICOTINE [Suspect]
     Indication: SMOKING CESSATION THERAPY
     Dosage: 14 MG, QD, TRANSDERMAL; 21 MG, QD, TRANSDERMAL
     Route: 062
     Dates: start: 20080101, end: 20080101
  3. NICOTINE [Suspect]
     Indication: SMOKING CESSATION THERAPY
     Dosage: 14 MG, QD, TRANSDERMAL; 21 MG, QD, TRANSDERMAL
     Route: 062
     Dates: start: 20090601, end: 20090601
  4. IBUPROFEN [Concomitant]
  5. FEMARA [Concomitant]
  6. ACYCLOVIR [Concomitant]

REACTIONS (5)
  - BREAST CANCER FEMALE [None]
  - INAPPROPRIATE SCHEDULE OF DRUG ADMINISTRATION [None]
  - NICOTINE DEPENDENCE [None]
  - OVERDOSE [None]
  - TREATMENT NONCOMPLIANCE [None]
